FAERS Safety Report 24182628 (Version 1)
Quarter: 2024Q3

REPORT INFORMATION
  Report Type: Spontaneous
  Country: US (occurrence: US)
  Receive Date: 20240807
  Receipt Date: 20240807
  Transmission Date: 20241017
  Serious: No
  Sender: ROCHE
  Company Number: US-ROCHE-10000041088

PATIENT

DRUGS (1)
  1. PHESGO [Suspect]
     Active Substance: HYALURONIDASE (HUMAN RECOMBINANT)\PERTUZUMAB\TRASTUZUMAB
     Indication: Product used for unknown indication
     Route: 065

REACTIONS (6)
  - Lung opacity [Unknown]
  - Pneumonia viral [Unknown]
  - Hypersensitivity pneumonitis [Unknown]
  - Toxicity to various agents [Unknown]
  - Pneumonitis [Unknown]
  - Cough [Unknown]
